FAERS Safety Report 4780752-1 (Version None)
Quarter: 2005Q3

REPORT INFORMATION
  Report Type: 
  Country: None (occurrence: None)
  Receive Date: 20050920
  Receipt Date: 20050906
  Transmission Date: 20060218
  Serious: Yes (Hospitalization)
  Sender: FDA-Public Use
  Company Number: THYM-10700

PATIENT
  Age: 16 Year
  Sex: Female
  Weight: 62.7 kg

DRUGS (15)
  1. THYMOGLOBULIN [Suspect]
     Indication: HEART TRANSPLANT REJECTION
     Dosage: 100 MG QD; IV
     Route: 042
     Dates: start: 20050805, end: 20050810
  2. TACROLIMUS [Concomitant]
  3. CELLCEPT [Concomitant]
  4. RAPAMUNE [Concomitant]
  5. BACTRIM [Concomitant]
  6. VALGANCICLOVIR [Concomitant]
  7. NIFEDIPINE [Concomitant]
  8. RANITIDINE [Concomitant]
  9. FERROURS SULFATE [Concomitant]
  10. MAGNESIUM OXIDE [Concomitant]
  11. MULTI-VITAMIN [Concomitant]
  12. PROZAC [Concomitant]
  13. LASIX [Concomitant]
  14. EPOGEN [Concomitant]
  15. PREDNISONE [Concomitant]

REACTIONS (5)
  - ARTHRALGIA [None]
  - C-REACTIVE PROTEIN INCREASED [None]
  - MYALGIA [None]
  - PRURITUS [None]
  - SERUM SICKNESS [None]
